FAERS Safety Report 5731959-8 (Version None)
Quarter: 2008Q2

REPORT INFORMATION
  Report Type: 
  Country: None (occurrence: None)
  Receive Date: 20080508
  Receipt Date: 20080506
  Transmission Date: 20081010
  Serious: Yes (Other)
  Sender: FDA-Public Use
  Company Number: US-BRISTOL-MYERS SQUIBB COMPANY-14178685

PATIENT
  Age: 31 Year
  Sex: Female

DRUGS (5)
  1. DOXORUBICIN HCL [Suspect]
     Indication: HODGKIN'S DISEASE
     Dosage: POWDER , STERILE CYCLICAL
  2. BLEOMYCIN SULFATE [Suspect]
     Indication: HODGKIN'S DISEASE
     Dosage: CYCLICAL
  3. VINBLASTINE SULFATE [Suspect]
     Indication: HODGKIN'S DISEASE
     Dosage: CYCLICAL
  4. DACARBAZINE [Suspect]
     Indication: HODGKIN'S DISEASE
     Dosage: CYCLICAL
  5. RITUXIMAB [Suspect]
     Indication: HODGKIN'S DISEASE
     Dosage: CYCLICAL

REACTIONS (1)
  - PULMONARY TOXICITY [None]
